FAERS Safety Report 24334942 (Version 2)
Quarter: 2024Q3

REPORT INFORMATION
  Report Type: Spontaneous
  Country: ID (occurrence: ID)
  Receive Date: 20240918
  Receipt Date: 20240925
  Transmission Date: 20241017
  Serious: Yes (Life-Threatening, Hospitalization, Other)
  Sender: PURDUE
  Company Number: ID-MLMSERVICE-20240909-PI184647-00145-1

PATIENT
  Age: 27 Year
  Sex: Female

DRUGS (35)
  1. MORPHINE SULFATE [Suspect]
     Active Substance: MORPHINE SULFATE
     Indication: Neuralgia
     Dosage: INTERMITTENT-HIGH DOSES(2 MILLIGRAM)
     Route: 042
  2. MORPHINE SULFATE [Suspect]
     Active Substance: MORPHINE SULFATE
     Indication: Sedative therapy
     Dosage: HIGH DOSES-15 MG OVER 24 HOURS(15 MILLIGRAM)
     Route: 065
  3. MORPHINE SULFATE [Suspect]
     Active Substance: MORPHINE SULFATE
     Indication: Breakthrough pain
  4. MORPHINE SULFATE [Suspect]
     Active Substance: MORPHINE SULFATE
     Indication: Back pain
  5. MORPHINE SULFATE [Suspect]
     Active Substance: MORPHINE SULFATE
     Indication: Neuralgia
     Dosage: INTERMITTENT-HIGH DOSES(2 MILLIGRAM)
     Route: 042
  6. MORPHINE SULFATE [Suspect]
     Active Substance: MORPHINE SULFATE
     Indication: Sedative therapy
     Dosage: HIGH DOSES-15 MG OVER 24 HOURS(15 MILLIGRAM)
     Route: 065
  7. MORPHINE SULFATE [Suspect]
     Active Substance: MORPHINE SULFATE
     Indication: Breakthrough pain
  8. MORPHINE SULFATE [Suspect]
     Active Substance: MORPHINE SULFATE
     Indication: Back pain
  9. PREGABALIN [Suspect]
     Active Substance: PREGABALIN
     Indication: Neuralgia
     Dosage: HIGH DOSES(75 MILLIGRAM, Q12H)
     Route: 065
  10. PREGABALIN [Suspect]
     Active Substance: PREGABALIN
     Indication: Sedative therapy
  11. PREGABALIN [Suspect]
     Active Substance: PREGABALIN
     Indication: Back pain
  12. KETAMINE [Suspect]
     Active Substance: KETAMINE
     Indication: Sedative therapy
     Dosage: INTERMITTENT-HIGH DOSES
     Route: 065
  13. KETAMINE [Suspect]
     Active Substance: KETAMINE
     Indication: Neuralgia
  14. KETAMINE [Suspect]
     Active Substance: KETAMINE
     Indication: Back pain
  15. FENTANYL [Suspect]
     Active Substance: FENTANYL\FENTANYL CITRATE
     Indication: Neuralgia
     Dosage: INTERMITTENT-HIGH DOSES
     Route: 065
  16. FENTANYL [Suspect]
     Active Substance: FENTANYL\FENTANYL CITRATE
     Indication: Sedative therapy
  17. FENTANYL [Suspect]
     Active Substance: FENTANYL\FENTANYL CITRATE
     Indication: Back pain
  18. PROPOFOL [Suspect]
     Active Substance: PROPOFOL
     Indication: Sedative therapy
     Dosage: UP TO 100 MG/HOUR-HIGH DOSES(100 MILLIGRAM, Q1H)
     Route: 065
  19. PROPOFOL [Suspect]
     Active Substance: PROPOFOL
     Indication: Back pain
  20. PROPOFOL [Suspect]
     Active Substance: PROPOFOL
     Indication: Neuralgia
  21. CELECOXIB [Suspect]
     Active Substance: CELECOXIB
     Indication: Neuralgia
     Dosage: HIGH DOSES(100 MILLIGRAM, Q12H)
     Route: 065
  22. CELECOXIB [Suspect]
     Active Substance: CELECOXIB
     Indication: Sedative therapy
  23. CELECOXIB [Suspect]
     Active Substance: CELECOXIB
     Indication: Back pain
  24. DEXMEDETOMIDINE [Suspect]
     Active Substance: DEXMEDETOMIDINE
     Indication: Neuralgia
     Dosage: UP TO 0.8 MICROGRAMS/KILOGRAM BODY WEIGHT/HOUR-HIGH DOSES(0.8 MCG/KG, Q1H)
     Route: 065
  25. DEXMEDETOMIDINE [Suspect]
     Active Substance: DEXMEDETOMIDINE
     Indication: Sedative therapy
  26. DEXMEDETOMIDINE [Suspect]
     Active Substance: DEXMEDETOMIDINE
     Indication: Back pain
  27. TRAMADOL [Suspect]
     Active Substance: TRAMADOL\TRAMADOL HYDROCHLORIDE
     Indication: Back pain
     Dosage: HIGH DOSES(100 MILLIGRAM, Q8H)
     Route: 065
  28. TRAMADOL [Suspect]
     Active Substance: TRAMADOL\TRAMADOL HYDROCHLORIDE
     Indication: Sedative therapy
  29. TRAMADOL [Suspect]
     Active Substance: TRAMADOL\TRAMADOL HYDROCHLORIDE
     Indication: Neuralgia
  30. METHYLPREDNISOLONE [Concomitant]
     Active Substance: METHYLPREDNISOLONE
     Indication: Meningitis bacterial
     Dosage: 500 MILLIGRAM, DAILY
     Route: 065
  31. DULOXETINE [Concomitant]
     Active Substance: DULOXETINE
     Indication: Back pain
     Dosage: UNK
     Route: 065
  32. DULOXETINE [Concomitant]
     Active Substance: DULOXETINE
     Indication: Neuralgia
  33. RISPERIDONE [Concomitant]
     Active Substance: RISPERIDONE
     Indication: Back pain
     Dosage: UNK
     Route: 065
  34. RISPERIDONE [Concomitant]
     Active Substance: RISPERIDONE
     Indication: Neuralgia
  35. MEROPENEM [Concomitant]
     Active Substance: MEROPENEM
     Indication: Meningitis bacterial
     Dosage: 2 GRAM, Q8H
     Route: 065

REACTIONS (12)
  - Sedation complication [Unknown]
  - Altered state of consciousness [Unknown]
  - Respiratory depression [Unknown]
  - Cranial nerve palsies multiple [Unknown]
  - Quadriparesis [Unknown]
  - Hemiparesis [Unknown]
  - Intensive care unit acquired weakness [Unknown]
  - Pneumonia [Unknown]
  - Dysphagia [Unknown]
  - Insomnia [Unknown]
  - Mood swings [Unknown]
  - Dysphonia [Unknown]
